FAERS Safety Report 10046824 (Version 1)
Quarter: 2014Q1

REPORT INFORMATION
  Report Type: Spontaneous
  Country: US (occurrence: None)
  Receive Date: 20140328
  Receipt Date: 20140328
  Transmission Date: 20141002
  Serious: Yes (Other)
  Sender: FDA-Public Use
  Company Number: None

PATIENT
  Age: 68 Year
  Sex: Female
  Weight: 68.04 kg

DRUGS (1)
  1. PROLENSA [Suspect]
     Indication: CATARACT OPERATION
     Dosage: 1 DROP ONCE DAILY INTO THE EYE
     Dates: start: 20140319, end: 20140322

REACTIONS (2)
  - Eye pain [None]
  - Eye irritation [None]
